FAERS Safety Report 4527413-1 (Version None)
Quarter: 2004Q4

REPORT INFORMATION
  Report Type: 
  Country: None (occurrence: None)
  Receive Date: 20041123
  Receipt Date: 20040830
  Transmission Date: 20050328
  Serious: Yes (Disabling, Other)
  Sender: FDA-Public Use
  Company Number: 2004061150

PATIENT
  Age: 50 Year
  Sex: Female

DRUGS (4)
  1. LIPITOR [Suspect]
     Indication: PROPHYLAXIS
     Dosage: 1 IN 1 D, ORAL
     Route: 048
     Dates: start: 20031201, end: 20040301
  2. IRBESARTAN [Concomitant]
  3. INSULIN [Concomitant]
  4. ACETYLALICYLIC ACID (ACETYLSALICYLIC ACID) [Concomitant]

REACTIONS (4)
  - ARTHRALGIA [None]
  - MUSCULOSKELETAL DISCOMFORT [None]
  - MYALGIA [None]
  - RHEUMATOID ARTHRITIS [None]
